FAERS Safety Report 10015875 (Version 4)
Quarter: 2014Q4

REPORT INFORMATION
  Report Type: Report from Study
  Country: VN (occurrence: VN)
  Receive Date: 20140317
  Receipt Date: 20141223
  Transmission Date: 20150528
  Serious: Yes (Death, Life-Threatening, Hospitalization, Other)
  Sender: FDA-Public Use
  Company Number: VN-GLAXOSMITHKLINE-B0972532B

PATIENT
  Age: 78 Year
  Sex: Male
  Weight: 62 kg

DRUGS (25)
  1. METHYLPREDNISOLONE. [Concomitant]
     Active Substance: METHYLPREDNISOLONE
     Dosage: 32 MG, OD
     Route: 048
     Dates: start: 20140220, end: 20140305
  2. EBASTINE [Concomitant]
     Active Substance: EBASTINE
     Indication: SINUSITIS
  3. FLUTICASONE FUROATE [Suspect]
     Active Substance: FLUTICASONE FUROATE
     Indication: CHRONIC OBSTRUCTIVE PULMONARY DISEASE
     Dates: start: 20130703, end: 20140311
  4. OMEPRAZOLE. [Concomitant]
     Active Substance: OMEPRAZOLE
     Indication: GASTRITIS PROPHYLAXIS
     Dosage: 20 MG, OD
     Route: 048
     Dates: start: 20140220, end: 20140305
  5. CEFUROXIM [Concomitant]
     Active Substance: CEFUROXIME
     Indication: SINUSITIS
  6. EBASTINE [Concomitant]
     Active Substance: EBASTINE
     Indication: SINUSITIS
     Dosage: 10 MG, OD
     Route: 048
     Dates: start: 20140227, end: 20140306
  7. CLOPIDOGREL [Concomitant]
     Active Substance: CLOPIDOGREL BISULFATE
     Indication: ANTIPLATELET THERAPY
     Dosage: 75 MG, OD
     Route: 048
     Dates: start: 20130529
  8. GLICLAZIDE [Concomitant]
     Active Substance: GLICLAZIDE
     Indication: DIABETES MELLITUS
  9. CEFUROXIM [Concomitant]
     Active Substance: CEFUROXIME
     Indication: SINUSITIS
  10. CARBOCISTEIN [Concomitant]
     Indication: SINUSITIS
     Dosage: 375 MG, BID
     Route: 048
     Dates: start: 20140227, end: 20140306
  11. IRBESARTAN. [Concomitant]
     Active Substance: IRBESARTAN
     Indication: HYPERTENSION
     Dosage: 150 MG, Q12H
     Route: 048
     Dates: start: 20131002
  12. CEFUROXIM [Concomitant]
     Active Substance: CEFUROXIME
     Indication: SINUSITIS
     Dosage: 500 MG, BID
     Route: 048
     Dates: start: 20140227, end: 20140306
  13. EBASTINE [Concomitant]
     Active Substance: EBASTINE
     Indication: SINUSITIS
  14. SIMVASTATIN. [Concomitant]
     Active Substance: SIMVASTATIN
     Indication: HYPERCHOLESTEROLAEMIA
  15. DILTIAZEM [Concomitant]
     Active Substance: DILTIAZEM
     Indication: HYPERTENSION
     Dosage: 60 MG, TID
     Route: 048
     Dates: start: 20130529
  16. MOXIFLOXACIN [Concomitant]
     Active Substance: MOXIFLOXACIN
     Indication: CONJUNCTIVITIS
     Dosage: 1 GTT, Q4H
     Route: 047
     Dates: start: 20140205, end: 20140209
  17. SIMVASTATIN. [Concomitant]
     Active Substance: SIMVASTATIN
     Indication: HYPERCHOLESTEROLAEMIA
     Dosage: 20 MG, OD
     Route: 048
     Dates: start: 20130529
  18. NITROGLYCERIN. [Concomitant]
     Active Substance: NITROGLYCERIN
     Indication: MYOCARDIAL ISCHAEMIA
  19. PREDNISOLONE ACETATE. [Concomitant]
     Active Substance: PREDNISOLONE ACETATE
     Indication: CONJUNCTIVITIS
     Dosage: 1 GTT, Q4H
     Dates: start: 20140205, end: 20140209
  20. THEOPHYLLINE [Concomitant]
     Active Substance: THEOPHYLLINE ANHYDROUS
     Indication: CHRONIC OBSTRUCTIVE PULMONARY DISEASE
     Dosage: 100 MG, BID
     Route: 048
     Dates: start: 20130529
  21. METHYLPREDNISOLONE. [Concomitant]
     Active Substance: METHYLPREDNISOLONE
     Indication: CELLULITIS ORBITAL
  22. PREDNISOLONE. [Concomitant]
     Active Substance: PREDNISOLONE
     Indication: CONJUNCTIVITIS
     Dosage: 1 GTT, Q2H
     Dates: start: 20140220, end: 20140305
  23. NITROGLYCERIN. [Concomitant]
     Active Substance: NITROGLYCERIN
     Indication: MYOCARDIAL ISCHAEMIA
     Dosage: 2.6 MG, BID
     Route: 048
     Dates: start: 20130529
  24. GLICLAZIDE [Concomitant]
     Active Substance: GLICLAZIDE
     Indication: DIABETES MELLITUS
     Dosage: 30 MG, OD
     Route: 048
     Dates: start: 20100518
  25. LYSOZYME CHLORIDE [Concomitant]
     Indication: CONJUNCTIVITIS
     Dosage: 90 MG, TID
     Route: 048
     Dates: start: 20140205, end: 20140209

REACTIONS (3)
  - Respiratory failure [Fatal]
  - Hepatic enzyme increased [Fatal]
  - Pneumonia [Fatal]

NARRATIVE: CASE EVENT DATE: 20140307
